FAERS Safety Report 19804456 (Version 1)
Quarter: 2021Q3

REPORT INFORMATION
  Report Type: Spontaneous
  Country: US (occurrence: US)
  Receive Date: 20210908
  Receipt Date: 20210908
  Transmission Date: 20211014
  Serious: No
  Sender: FDA-Public Use
  Company Number: US-FARMAPROD-202106-0949

PATIENT
  Sex: Female

DRUGS (4)
  1. PRED?G [Concomitant]
     Active Substance: GENTAMICIN\GENTAMICIN SULFATE\PREDNISOLONE ACETATE
     Dosage: 0.3%?1% DROPS SUSPENSION
  2. POLYMYXIN B SULFATE/TRIMETHOPRIM [Concomitant]
     Active Substance: POLYMYXIN B SULFATE\TRIMETHOPRIM
  3. OXERVATE [Suspect]
     Active Substance: CENEGERMIN-BKBJ
     Indication: NEUROTROPHIC KERATOPATHY
     Route: 047
     Dates: start: 20210608
  4. BRIMONIDINE/DORZOLAMIDE [Concomitant]

REACTIONS (3)
  - Eye pain [Unknown]
  - Facial pain [Unknown]
  - Eye inflammation [Unknown]
